FAERS Safety Report 5286062-0 (Version None)
Quarter: 2007Q1

REPORT INFORMATION
  Report Type: 
  Country: None (occurrence: None)
  Receive Date: 20070329
  Receipt Date: 20070319
  Transmission Date: 20070707
  Serious: Yes (Hospitalization)
  Sender: FDA-Public Use
  Company Number: 232235K07USA

PATIENT
  Age: 58 Year
  Sex: Female

DRUGS (5)
  1. REBIF [Suspect]
     Indication: MULTIPLE SCLEROSIS
     Dosage: 44 MCG, 3 IN 1 WEEKS, SUBCUTANEOUS
     Route: 058
     Dates: start: 20040227
  2. BENICAR [Concomitant]
  3. ANTIHYPERTENSIVE (-ANTIHYPERTENSIVES) [Concomitant]
  4. SYNTHROID [Concomitant]
  5. VICODIN [Concomitant]

REACTIONS (4)
  - CELLULITIS [None]
  - FALL [None]
  - FEMUR FRACTURE [None]
  - LIMB DEFORMITY [None]
